FAERS Safety Report 9733160 (Version 1)
Quarter: 2013Q4

REPORT INFORMATION
  Report Type: Spontaneous
  Country: US (occurrence: None)
  Receive Date: 20131204
  Receipt Date: 20131204
  Transmission Date: 20140711
  Serious: Yes (Hospitalization)
  Sender: FDA-Public Use
  Company Number: None

PATIENT
  Age: 79 Year
  Sex: Female
  Weight: 67 kg

DRUGS (1)
  1. RIVAROXABAN [Suspect]
     Indication: ATRIAL FLUTTER
     Dosage: 1 PILL BID ORAL
     Route: 048

REACTIONS (1)
  - Iron deficiency anaemia [None]
